FAERS Safety Report 7644776-9 (Version None)
Quarter: 2011Q3

REPORT INFORMATION
  Report Type: 
  Country: None (occurrence: None)
  Receive Date: 20110729
  Receipt Date: 20110725
  Transmission Date: 20111222
  Serious: Yes (Hospitalization, Other)
  Sender: FDA-Public Use
  Company Number: US-BAYER-201017609NA

PATIENT
  Age: 16 Year
  Sex: Female
  Weight: 113.83 kg

DRUGS (13)
  1. YASMIN [Suspect]
     Dosage: UNK
     Dates: start: 20050501, end: 20071101
  2. PROTONIX [Concomitant]
     Indication: GASTROOESOPHAGEAL REFLUX DISEASE
     Dosage: UNK
     Dates: start: 20060910, end: 20061010
  3. VICODIN [Concomitant]
  4. ADVAIR DISKUS 100/50 [Concomitant]
     Indication: ASTHMA
     Dosage: UNK
     Dates: start: 20050101
  5. PHENERGAN HCL [Concomitant]
  6. VALTREX [Concomitant]
     Dosage: UNK
     Dates: start: 20060517, end: 20061121
  7. FLONASE [Concomitant]
     Indication: ASTHMA
     Dosage: UNK
     Dates: start: 20070201
  8. DICYCLOMINE [Concomitant]
     Dosage: UNK
     Dates: start: 20060828
  9. ALBUTEROL SULFATE AUTOHALER [Concomitant]
     Indication: ASTHMA
     Dosage: UNK
     Dates: start: 20040401
  10. FLUCONAZOLE [Concomitant]
     Dosage: UNK
     Dates: start: 20060524, end: 20060623
  11. SINGULAIR [Concomitant]
     Indication: ASTHMA
     Dosage: UNK
     Dates: start: 20051101
  12. YASMIN [Suspect]
     Indication: CONTRACEPTION
     Dosage: UNK
     Route: 048
     Dates: start: 20060916, end: 20061016
  13. PROPOXYPHENE NAPSYLATE [Concomitant]
     Dosage: UNK
     Dates: start: 20060910

REACTIONS (7)
  - CHOLELITHIASIS [None]
  - ANXIETY [None]
  - CHOLECYSTITIS ACUTE [None]
  - SCAR [None]
  - CHOLECYSTECTOMY [None]
  - HAEMOBILIA [None]
  - DEPRESSION [None]
